FAERS Safety Report 5426213-8 (Version None)
Quarter: 2007Q3

REPORT INFORMATION
  Report Type: 
  Country: None (occurrence: None)
  Receive Date: 20070827
  Receipt Date: 20070820
  Transmission Date: 20080115
  Serious: Yes (Hospitalization)
  Sender: FDA-Public Use
  Company Number: D0054324A

PATIENT
  Age: 42 Year
  Sex: Male

DRUGS (2)
  1. ADARTREL [Suspect]
     Indication: RESTLESS LEGS SYNDROME
     Route: 048
     Dates: start: 20070801
  2. CABERGOLINE [Concomitant]
     Indication: RESTLESS LEGS SYNDROME
     Route: 048
     Dates: end: 20070101

REACTIONS (1)
  - EPILEPSY [None]
